FAERS Safety Report 4365502-5 (Version None)
Quarter: 2004Q2

REPORT INFORMATION
  Report Type: 
  Country: None (occurrence: None)
  Receive Date: 20040526
  Receipt Date: 20040517
  Transmission Date: 20050107
  Serious: Yes (Other)
  Sender: FDA-Public Use
  Company Number: GB-MERCK-0405GBR00157

PATIENT

DRUGS (3)
  1. GENERAL ANESTHESIA (UNSPECIFIED) [Concomitant]
     Route: 065
  2. OXYCODONE HYDROCHLORIDE [Concomitant]
     Indication: POST PROCEDURAL PAIN
     Route: 065
     Dates: start: 20040514
  3. VIOXX [Suspect]
     Indication: POST PROCEDURAL PAIN
     Route: 048
     Dates: start: 20040514, end: 20040514

REACTIONS (1)
  - POST PROCEDURAL HAEMORRHAGE [None]
